FAERS Safety Report 8084109-X (Version None)
Quarter: 2012Q1

REPORT INFORMATION
  Report Type: 
  Country: None (occurrence: None)
  Receive Date: 20120128
  Receipt Date: 20110208
  Transmission Date: 20120608
  Serious: No
  Sender: FDA-Public Use
  Company Number: US-ABBOTT-11P-163-0703469-00

PATIENT
  Age: 57 Year
  Sex: Female

DRUGS (6)
  1. LEVOXYL [Concomitant]
     Indication: THYROID DISORDER
     Dosage: 150 MCG DAILY
  2. HUMIRA [Suspect]
     Dates: start: 20110126
  3. METHOTREXATE [Concomitant]
     Indication: PRODUCT USED FOR UNKNOWN INDICATION
  4. HUMIRA [Suspect]
     Indication: PSORIATIC ARTHROPATHY
     Dates: start: 20060101, end: 20101201
  5. VESICARE [Concomitant]
     Indication: BLADDER DISORDER
     Dosage: 10 MG DAILY
  6. FOLIC ACID [Concomitant]
     Indication: PRODUCT USED FOR UNKNOWN INDICATION
     Dosage: 2 MG DAILY

REACTIONS (6)
  - INJECTION SITE PAIN [None]
  - PSORIASIS [None]
  - JOINT STIFFNESS [None]
  - INJECTION SITE DISCOMFORT [None]
  - ARTHRALGIA [None]
  - ARTHRITIS [None]
